FAERS Safety Report 17025138 (Version 3)
Quarter: 2020Q2

REPORT INFORMATION
  Report Type: Report from Study
  Country: US (occurrence: US)
  Receive Date: 20191113
  Receipt Date: 20200406
  Transmission Date: 20200713
  Serious: Yes (Other)
  Sender: FDA-Public Use
  Company Number: NVSC2019US034490

PATIENT
  Sex: Male

DRUGS (1)
  1. ENTRESTO [Suspect]
     Active Substance: SACUBITRIL\VALSARTAN
     Indication: CARDIAC FAILURE
     Dosage: 1 DF (24MGVALSARTAN/26MG SACUBITRIL)
     Route: 065

REACTIONS (3)
  - Internal haemorrhage [Unknown]
  - Wrong technique in product usage process [Unknown]
  - Hypotension [Unknown]
